FAERS Safety Report 24956060 (Version 1)
Quarter: 2025Q1

REPORT INFORMATION
  Report Type: Spontaneous
  Country: US (occurrence: US)
  Receive Date: 20250211
  Receipt Date: 20250211
  Transmission Date: 20250408
  Serious: Yes (Other)
  Sender: BRISTOL-MYERS SQUIBB COMPANY
  Company Number: US-BRISTOL-MYERS SQUIBB COMPANY-2025-016064

PATIENT
  Age: 75 Year
  Sex: Female
  Weight: 72.57 kg

DRUGS (1)
  1. LENALIDOMIDE [Suspect]
     Active Substance: LENALIDOMIDE
     Indication: Anaemia
     Dosage: TAKE 1 CAPSULE (5MG TOTAL) BY MOUTH EVERY DAY FOR 21 DAYS FOLLOWED BY 7 DAYS OFF
     Route: 048

REACTIONS (11)
  - Diarrhoea [Recovering/Resolving]
  - Weight decreased [Recovering/Resolving]
  - Pain [Recovering/Resolving]
  - Fatigue [Recovering/Resolving]
  - Decreased appetite [Recovering/Resolving]
  - Aneurysm [Recovering/Resolving]
  - Multiple sclerosis [Recovering/Resolving]
  - Pain in extremity [Recovering/Resolving]
  - Herpes zoster [Recovering/Resolving]
  - Bone disorder [Recovering/Resolving]
  - Off label use [Unknown]
